FAERS Safety Report 6819649-1 (Version None)
Quarter: 2010Q3

REPORT INFORMATION
  Report Type: 
  Country: None (occurrence: None)
  Receive Date: 20100707
  Receipt Date: 20100701
  Transmission Date: 20110219
  Serious: Yes (Death)
  Sender: FDA-Public Use
  Company Number: JP-ASTRAZENECA-2010SE31162

PATIENT
  Age: 85 Year
  Sex: Female

DRUGS (11)
  1. SEROQUEL [Suspect]
     Route: 048
  2. GRAMALIL [Suspect]
     Route: 048
  3. GRAMALIL [Suspect]
     Route: 048
  4. RISPERDAL [Suspect]
     Route: 048
  5. CONTOMIN [Concomitant]
     Route: 048
  6. LENDORMIN [Concomitant]
     Route: 048
  7. ZYPREXA [Concomitant]
     Route: 048
  8. LORAZEPAM [Concomitant]
     Route: 048
  9. DAIKENTYUTO [Concomitant]
     Route: 048
  10. PURSENNID [Concomitant]
     Route: 048
  11. MAGNESIUM OXIDE [Concomitant]
     Route: 048

REACTIONS (1)
  - CEREBRAL INFARCTION [None]
